FAERS Safety Report 7355307-5 (Version None)
Quarter: 2011Q1

REPORT INFORMATION
  Report Type: 
  Country: None (occurrence: None)
  Receive Date: 20110316
  Receipt Date: 20110311
  Transmission Date: 20110831
  Serious: Yes (Hospitalization)
  Sender: FDA-Public Use
  Company Number: BE-B.I. PHARMACEUTICALS,INC./RIDGEFIELD-2011-BL-00019BL

PATIENT
  Sex: Male
  Weight: 56 kg

DRUGS (3)
  1. VIRAMUNE [Suspect]
     Indication: HIV INFECTION
     Dosage: 200 MG
     Dates: start: 20101025
  2. TRUVADA [Concomitant]
     Dates: start: 20101025
  3. VIRAMUNE [Suspect]
     Dosage: 400 MG
     Dates: end: 20101122

REACTIONS (3)
  - HEPATITIS [None]
  - DYSPEPSIA [None]
  - CHOLESTASIS [None]
